FAERS Safety Report 8688329 (Version 2)
Quarter: 2013Q4

REPORT INFORMATION
  Report Type: Spontaneous
  Country: US (occurrence: US)
  Receive Date: 20120727
  Receipt Date: 20131031
  Transmission Date: 20140711
  Serious: No
  Sender: FDA-Public Use
  Company Number: US-009507513-2012SP023076

PATIENT
  Age: 60 Year
  Sex: Female
  Weight: 55.79 kg

DRUGS (1)
  1. CLARITIN [Suspect]
     Indication: SEASONAL ALLERGY
     Dosage: 10 MG, ONCE
     Route: 048
     Dates: start: 20120403

REACTIONS (5)
  - Dyspnoea [Recovered/Resolved]
  - Dysphagia [Recovered/Resolved]
  - Dry mouth [Recovered/Resolved]
  - Nasal dryness [Recovered/Resolved]
  - Dry throat [Recovered/Resolved]
